FAERS Safety Report 19673816 (Version 1)
Quarter: 2021Q3

REPORT INFORMATION
  Report Type: Spontaneous
  Country: US (occurrence: US)
  Receive Date: 20210809
  Receipt Date: 20210809
  Transmission Date: 20211014
  Serious: No
  Sender: FDA-Public Use
  Company Number: US-ROCHE-2709556

PATIENT

DRUGS (1)
  1. PERJETA [Suspect]
     Active Substance: PERTUZUMAB
     Indication: PRODUCT USED FOR UNKNOWN INDICATION
     Dosage: 420 MG /14 ML VIAL
     Route: 065

REACTIONS (3)
  - Intercepted product storage error [Unknown]
  - Product temperature excursion issue [Unknown]
  - No adverse event [Unknown]

NARRATIVE: CASE EVENT DATE: 20201103
